FAERS Safety Report 9215294 (Version 1)
Quarter: 2013Q2

REPORT INFORMATION
  Report Type: Spontaneous
  Country: US (occurrence: US)
  Receive Date: 20130405
  Receipt Date: 20130405
  Transmission Date: 20140414
  Serious: No
  Sender: FDA-Public Use
  Company Number: US-B.I. PHARMACEUTICALS,INC./RIDGEFIELD-2013-BI-09109YA

PATIENT
  Age: 58 Year
  Sex: Male

DRUGS (2)
  1. TAMSULOSIN CAPSULES [Suspect]
     Route: 065
  2. VESICARE [Suspect]
     Dosage: 5 MG
     Route: 048

REACTIONS (3)
  - Drug ineffective [Unknown]
  - Pollakiuria [Unknown]
  - Nocturia [Unknown]
